FAERS Safety Report 15530172 (Version 2)
Quarter: 2020Q3

REPORT INFORMATION
  Report Type: Report from Study
  Country: CA (occurrence: CA)
  Receive Date: 20181018
  Receipt Date: 20200701
  Transmission Date: 20201102
  Serious: Yes (Other)
  Sender: FDA-Public Use
  Company Number: CA-GLAXOSMITHKLINE-CA2018GSK157374

PATIENT
  Age: 65 Year
  Sex: Female
  Weight: 96.75 kg

DRUGS (6)
  1. SINGULAIR [Suspect]
     Active Substance: MONTELUKAST SODIUM
     Indication: PRODUCT USED FOR UNKNOWN INDICATION
     Dosage: UNK
  2. ZENHALE [Suspect]
     Active Substance: FORMOTEROL FUMARATE\MOMETASONE FUROATE
     Indication: PRODUCT USED FOR UNKNOWN INDICATION
     Dosage: 2 PUFF(S), BID
     Dates: start: 201604
  3. MEPOLIZUMAB [Suspect]
     Active Substance: MEPOLIZUMAB
     Indication: ASTHMA
     Dosage: 100 MG, Z(MONTHLY)
     Route: 042
     Dates: start: 20160407
  4. VENTOLIN [Suspect]
     Active Substance: ALBUTEROL SULFATE
     Indication: ASTHMA
     Dosage: 100 UG, PRN
  5. ADVAIR HFA [Suspect]
     Active Substance: FLUTICASONE PROPIONATE\SALMETEROL XINAFOATE
     Indication: ASTHMA
     Dosage: UNK
     Route: 055
  6. SPIRIVA [Suspect]
     Active Substance: TIOTROPIUM BROMIDE MONOHYDRATE
     Indication: ASTHMA
     Dosage: UNK

REACTIONS (16)
  - Increased upper airway secretion [Unknown]
  - Chest discomfort [Recovered/Resolved]
  - Sinus headache [Unknown]
  - Condition aggravated [Unknown]
  - Respiratory disorder [Unknown]
  - Therapeutic product effect incomplete [Unknown]
  - Eye irritation [Unknown]
  - Rhinorrhoea [Unknown]
  - Blood count abnormal [Unknown]
  - Lacrimation increased [Unknown]
  - Sneezing [Unknown]
  - Wheezing [Recovered/Resolved]
  - Breast cancer female [Unknown]
  - Asthma [Unknown]
  - Obstructive airways disorder [Unknown]
  - Dyspnoea exertional [Unknown]

NARRATIVE: CASE EVENT DATE: 20160316
